FAERS Safety Report 18275057 (Version 1)
Quarter: 2020Q3

REPORT INFORMATION
  Report Type: Report from Study
  Country: CA (occurrence: CA)
  Receive Date: 20200916
  Receipt Date: 20200916
  Transmission Date: 20201103
  Serious: Yes (Death, Hospitalization, Other)
  Sender: FDA-Public Use
  Company Number: CA-JNJFOC-A-NJ2019-195265

PATIENT
  Age: 70 Year
  Sex: Female

DRUGS (24)
  1. UPTRAVI [Suspect]
     Active Substance: SELEXIPAG
     Dosage: 400 MCG, BID
     Route: 048
     Dates: start: 20200423
  2. VITAMIN D [Concomitant]
     Active Substance: VITAMIN D NOS
  3. MULTIVITAMIN [Concomitant]
     Active Substance: VITAMINS
  4. TRACLEER [Suspect]
     Active Substance: BOSENTAN
     Indication: PULMONARY ARTERIAL HYPERTENSION
     Dosage: 125 MG
     Route: 048
     Dates: start: 20151121
  5. FUROSEMIDE. [Concomitant]
     Active Substance: FUROSEMIDE
  6. BREO ELLIPTA [Concomitant]
     Active Substance: FLUTICASONE FUROATE\VILANTEROL TRIFENATATE
  7. PROLIA [Concomitant]
     Active Substance: DENOSUMAB
  8. UPTRAVI [Suspect]
     Active Substance: SELEXIPAG
     Dosage: 800 MCG AM/1000 MCG PM
     Route: 048
     Dates: start: 20191017
  9. UPTRAVI [Suspect]
     Active Substance: SELEXIPAG
     Dosage: 1000 MCG, BID
     Route: 048
  10. UPTRAVI [Suspect]
     Active Substance: SELEXIPAG
     Dosage: 800 MCG, BID
     Route: 048
  11. IMODIUM [Concomitant]
     Active Substance: LOPERAMIDE HYDROCHLORIDE
  12. UPTRAVI [Suspect]
     Active Substance: SELEXIPAG
     Dosage: 200 MCG
     Route: 048
     Dates: start: 20190826
  13. UPTRAVI [Suspect]
     Active Substance: SELEXIPAG
     Dosage: 400 MCG
     Route: 048
     Dates: start: 20190826
  14. UPTRAVI [Suspect]
     Active Substance: SELEXIPAG
     Dosage: 600 MCG AND 800 MCG, PRN
     Route: 048
  15. ADCIRCA [Concomitant]
     Active Substance: TADALAFIL
  16. RANITIDINE. [Concomitant]
     Active Substance: RANITIDINE
  17. ATORVASTATIN [Concomitant]
     Active Substance: ATORVASTATIN
  18. UPTRAVI [Suspect]
     Active Substance: SELEXIPAG
     Indication: PULMONARY ARTERIAL HYPERTENSION
     Dosage: 800 MCG
     Route: 048
     Dates: start: 20190826
  19. UPTRAVI [Suspect]
     Active Substance: SELEXIPAG
     Dosage: 800 MCG AM/1000 MCG PM
     Route: 048
     Dates: start: 20191113
  20. CANNABIS [Concomitant]
     Active Substance: CANNABIS SATIVA SUBSP. INDICA TOP
  21. PANTOPRAZOLE [Concomitant]
     Active Substance: PANTOPRAZOLE
  22. VENLAFAXINE [Concomitant]
     Active Substance: VENLAFAXINE HYDROCHLORIDE
  23. UPTRAVI [Suspect]
     Active Substance: SELEXIPAG
     Dosage: 1200 MCG, BID
     Route: 048
  24. ZOPICLONE [Concomitant]
     Active Substance: ZOPICLONE

REACTIONS (30)
  - Nausea [Recovering/Resolving]
  - Cough [Recovering/Resolving]
  - Inappropriate schedule of product administration [Unknown]
  - Dizziness [Recovering/Resolving]
  - Feeling abnormal [Recovering/Resolving]
  - Fear [Recovering/Resolving]
  - Headache [Recovering/Resolving]
  - Wheezing [Unknown]
  - Hot flush [Not Recovered/Not Resolved]
  - Sleep disorder [Unknown]
  - Product dose omission issue [Unknown]
  - Panic attack [Recovered/Resolved]
  - Drug ineffective [Unknown]
  - Diarrhoea [Recovering/Resolving]
  - Asthenia [Recovering/Resolving]
  - Tremor [Not Recovered/Not Resolved]
  - Anxiety [Not Recovered/Not Resolved]
  - Memory impairment [Unknown]
  - Dyspnoea [Recovering/Resolving]
  - Loss of personal independence in daily activities [Not Recovered/Not Resolved]
  - Abdominal discomfort [Recovering/Resolving]
  - Death [Fatal]
  - Lower respiratory tract infection [Unknown]
  - Hyperhidrosis [Recovering/Resolving]
  - Insomnia [Recovering/Resolving]
  - Extra dose administered [Unknown]
  - Cardiac disorder [Unknown]
  - Nasal congestion [Unknown]
  - Vomiting [Recovering/Resolving]
  - Productive cough [Unknown]

NARRATIVE: CASE EVENT DATE: 20190827
